FAERS Safety Report 14563201 (Version 1)
Quarter: 2018Q1

REPORT INFORMATION
  Report Type: Spontaneous
  Country: PL (occurrence: PL)
  Receive Date: 20180222
  Receipt Date: 20180222
  Transmission Date: 20180509
  Serious: Yes (Other)
  Sender: FDA-Public Use
  Company Number: PL-TEVA-2018-PL-857964

PATIENT
  Age: 60 Year
  Sex: Male
  Weight: 80 kg

DRUGS (16)
  1. KALIPOZ PROLONGATUM [Suspect]
     Active Substance: POTASSIUM CHLORIDE
     Route: 048
  2. WARFIN [Suspect]
     Active Substance: WARFARIN
     Route: 042
     Dates: start: 20140211, end: 20140212
  3. PYRALGINA [Suspect]
     Active Substance: METAMIZOLE MAGNESIUM
     Route: 042
     Dates: start: 20140205, end: 20140212
  4. KALIUM EFFERVESCENS BEZCUKROWY [Suspect]
     Active Substance: POTASSIUM BICARBONATE\POTASSIUM CITRATE
     Route: 048
     Dates: start: 20140207, end: 20140212
  5. THEOSPIREX [Suspect]
     Active Substance: THEOPHYLLINE ANHYDROUS
     Route: 042
     Dates: start: 20140210, end: 20140212
  6. CIPRONEX [Suspect]
     Active Substance: CIPROFLOXACIN
     Route: 042
     Dates: start: 20140207, end: 20140212
  7. CLEXANE [Suspect]
     Active Substance: ENOXAPARIN SODIUM
     Dosage: DOSE: 80MG/0.8ML
     Route: 058
  8. ACC 300 MG/3 ML [Suspect]
     Active Substance: ACETYLCYSTEINE
     Route: 042
  9. LOZAP (LOSARTAN POTASSIUM) [Suspect]
     Active Substance: LOSARTAN POTASSIUM
     Route: 048
  10. ZOCOR [Suspect]
     Active Substance: SIMVASTATIN
     Route: 048
  11. BIODACYNA [Suspect]
     Active Substance: AMIKACIN SULFATE
     Route: 042
     Dates: start: 20140211, end: 20140212
  12. ATROVENT [Suspect]
     Active Substance: IPRATROPIUM BROMIDE
     Route: 055
  13. BETALOC ZOK 50 MG [Suspect]
     Active Substance: METOPROLOL SUCCINATE
     Route: 048
  14. DIUVER [Suspect]
     Active Substance: TORSEMIDE
     Route: 048
  15. BERODUAL [Suspect]
     Active Substance: FENOTEROL HYDROBROMIDE\IPRATROPIUM BROMIDE
     Route: 055
  16. FUROSEMIDE. [Suspect]
     Active Substance: FUROSEMIDE
     Route: 042

REACTIONS (5)
  - Bradycardia [Recovered/Resolved]
  - Asthenia [Recovered/Resolved]
  - Dyspnoea [Recovered/Resolved]
  - Dizziness [Recovered/Resolved]
  - Blood pressure decreased [Recovered/Resolved]

NARRATIVE: CASE EVENT DATE: 20140212
